FAERS Safety Report 7884798-6 (Version None)
Quarter: 2011Q4

REPORT INFORMATION
  Report Type: 
  Country: None (occurrence: None)
  Receive Date: 20111102
  Receipt Date: 20111020
  Transmission Date: 20120403
  Serious: Yes (Hospitalization)
  Sender: FDA-Public Use
  Company Number: PHHO2010ES14198

PATIENT
  Sex: Female
  Weight: 73.9 kg

DRUGS (5)
  1. ALLOPURINOL [Suspect]
     Indication: HYPERURICAEMIA
     Dosage: 100MG OID
     Route: 048
     Dates: start: 20080101, end: 20100908
  2. BLINDED PLACEBO [Suspect]
     Indication: CARDIOVASCULAR DISORDER
     Dosage: DOUBLE BLINDED
     Route: 048
     Dates: start: 20100629, end: 20100908
  3. BLINDED NO TREATMENT RECEIVED [Suspect]
     Indication: CARDIOVASCULAR DISORDER
     Dosage: DOUBLE BLINDED
     Route: 048
     Dates: start: 20100629, end: 20100908
  4. ATORVASTATIN [Suspect]
     Indication: HYPERCHOLESTEROLAEMIA
     Dosage: 20MG OID
     Route: 048
     Dates: start: 20040101, end: 20100908
  5. BLINDED ALISKIREN [Suspect]
     Indication: CARDIOVASCULAR DISORDER
     Dosage: DOUBLE BLINDED
     Route: 048
     Dates: start: 20100629, end: 20100908

REACTIONS (6)
  - DECREASED APPETITE [None]
  - HEPATITIS [None]
  - JAUNDICE [None]
  - CHOLELITHIASIS [None]
  - ASTHENIA [None]
  - VOMITING [None]
